FAERS Safety Report 11270487 (Version 1)
Quarter: 2015Q3

REPORT INFORMATION
  Report Type: Spontaneous
  Country: JP (occurrence: JP)
  Receive Date: 20150714
  Receipt Date: 20150714
  Transmission Date: 20151125
  Serious: Yes (Life-Threatening)
  Sender: FDA-Public Use
  Company Number: JP-009507513-1504JPN014163

PATIENT
  Age: 85 Year
  Sex: Female
  Weight: 43 kg

DRUGS (8)
  1. CUBICIN [Suspect]
     Active Substance: DAPTOMYCIN
     Dosage: 350 MG, QD
     Route: 041
     Dates: start: 20140211, end: 20140307
  2. RIFAMPIN. [Concomitant]
     Active Substance: RIFAMPIN
     Indication: MUSCLE ABSCESS
     Dosage: 450 MG, QD
     Route: 048
     Dates: start: 20140220, end: 20140307
  3. CUBICIN [Suspect]
     Active Substance: DAPTOMYCIN
     Indication: SACROILIITIS
     Dosage: 250 MG, QD
     Route: 041
     Dates: start: 20140206, end: 20140210
  4. CUBICIN [Suspect]
     Active Substance: DAPTOMYCIN
     Indication: BACTERAEMIA
     Dosage: 250 MG, QOD
     Route: 041
     Dates: start: 20140131, end: 20140205
  5. ZOSYN [Concomitant]
     Active Substance: PIPERACILLIN SODIUM\TAZOBACTAM SODIUM
     Indication: BACTERAEMIA
     Dosage: 4.5 G, BID
     Route: 042
     Dates: start: 20140207, end: 20140220
  6. MEROPENEM. [Concomitant]
     Active Substance: MEROPENEM
     Indication: SACROILIITIS
     Dosage: 0.5 G, TID
     Route: 042
     Dates: start: 20140131, end: 20140205
  7. ZOSYN [Concomitant]
     Active Substance: PIPERACILLIN SODIUM\TAZOBACTAM SODIUM
     Indication: SACROILIITIS
  8. MEROPENEM. [Concomitant]
     Active Substance: MEROPENEM
     Indication: BACTERAEMIA
     Dosage: 1 G, BID
     Route: 042
     Dates: start: 20140130, end: 20140130

REACTIONS (1)
  - Eosinophilic pneumonia [Recovering/Resolving]

NARRATIVE: CASE EVENT DATE: 20140306
